FAERS Safety Report 9060871 (Version 1)
Quarter: 2013Q1

REPORT INFORMATION
  Report Type: Spontaneous
  Country: JP (occurrence: JP)
  Receive Date: 20130204
  Receipt Date: 20130204
  Transmission Date: 20140127
  Serious: Yes (Other)
  Sender: FDA-Public Use
  Company Number: JP-ASTRAZENECA-2013SE05253

PATIENT
  Sex: Male

DRUGS (4)
  1. CASODEX [Suspect]
     Indication: PROSTATE CANCER
     Route: 048
  2. CASODEX [Suspect]
     Indication: PROSTATE CANCER
     Route: 048
  3. RANMARK [Concomitant]
     Indication: METASTASES TO BONE
     Route: 058
     Dates: end: 201301
  4. HUMAN CHORIONIC GONADOTROPHIN [Concomitant]
     Indication: PROSTATE CANCER
     Route: 065

REACTIONS (1)
  - Hypocalcaemia [Not Recovered/Not Resolved]
